FAERS Safety Report 5465161-4 (Version None)
Quarter: 2007Q3

REPORT INFORMATION
  Report Type: 
  Country: None (occurrence: None)
  Receive Date: 20070820
  Receipt Date: 20070523
  Transmission Date: 20080115
  Serious: No
  Sender: FDA-Public Use
  Company Number: WAES 0705USA04234

PATIENT
  Sex: Female

DRUGS (6)
  1. JANUVIA [Suspect]
     Indication: DIABETES MELLITUS
     Dosage: PO
     Route: 048
     Dates: start: 20070515
  2. LOTREL [Concomitant]
  3. VYTORIN [Concomitant]
  4. ATENOLOL [Concomitant]
  5. BUMETANIDE [Concomitant]
  6. GLIPIZIDE [Concomitant]

REACTIONS (1)
  - DIZZINESS [None]
